FAERS Safety Report 5989533-4 (Version None)
Quarter: 2008Q4

REPORT INFORMATION
  Report Type: 
  Country: None (occurrence: None)
  Receive Date: 20081208
  Receipt Date: 20081121
  Transmission Date: 20090506
  Serious: Yes (Death, Hospitalization)
  Sender: FDA-Public Use
  Company Number: 2007US002475

PATIENT
  Age: 41 Year
  Sex: Male

DRUGS (5)
  1. PROGRAF [Suspect]
     Indication: RENAL TRANSPLANT
     Dosage: 5 MG, BID, ORAL
     Route: 048
     Dates: start: 20050901
  2. LANTUS [Concomitant]
  3. PROCARDIA XL [Concomitant]
  4. VASOTEC [Concomitant]
  5. MYFORTIC [Concomitant]

REACTIONS (3)
  - CARDIAC ARREST [None]
  - GANGRENE [None]
  - INFECTION [None]
